FAERS Safety Report 4750821-0 (Version None)
Quarter: 2005Q3

REPORT INFORMATION
  Report Type: 
  Country: None (occurrence: None)
  Receive Date: 20050822
  Receipt Date: 20050804
  Transmission Date: 20060218
  Serious: Yes (Congenital Anomaly, Other)
  Sender: FDA-Public Use
  Company Number: 2005-BP-13423RO

PATIENT
  Sex: Female

DRUGS (2)
  1. METHOTREXATE [Suspect]
     Indication: ABORTION INDUCED
     Dosage: IN-UTERO EXPOSURE
  2. MISOPROSTOL [Suspect]
     Indication: ABORTION INDUCED

REACTIONS (15)
  - ABNORMAL PALMAR/PLANTAR CREASES [None]
  - CEREBRAL VENTRICLE DILATATION [None]
  - CONGENITAL BOWING OF LONG BONES [None]
  - CONGENITAL CHOROID PLEXUS CYST [None]
  - DRUG EXPOSURE DURING PREGNANCY [None]
  - FOETAL GROWTH RETARDATION [None]
  - GROWTH RETARDATION [None]
  - INDUCED ABORTION FAILED [None]
  - INDUCED LABOUR [None]
  - LIMB MALFORMATION [None]
  - PRE-ECLAMPSIA [None]
  - PREMATURE LABOUR [None]
  - PUPILS UNEQUAL [None]
  - RIB HYPOPLASIA [None]
  - WEIGHT GAIN POOR [None]
